FAERS Safety Report 9394420 (Version 1)
Quarter: 2013Q3

REPORT INFORMATION
  Report Type: Spontaneous
  Country: US (occurrence: US)
  Receive Date: 20130711
  Receipt Date: 20130711
  Transmission Date: 20140515
  Serious: No
  Sender: FDA-Public Use
  Company Number: US-PFIZER INC-2013201956

PATIENT
  Age: 45 Year
  Sex: Female
  Weight: 63.49 kg

DRUGS (6)
  1. NEURONTIN [Suspect]
     Indication: NEUROPATHY PERIPHERAL
     Dosage: 300 MG, 3X/DAY
     Route: 048
     Dates: start: 201211
  2. NEURONTIN [Suspect]
     Dosage: 600 MG (BY TAKING TWO CAPSULES OF 300MG), 3X/DAY
     Route: 048
  3. NEURONTIN [Suspect]
     Dosage: 900 MG (BY TAKING THREE CAPSULES OF 300MG), 3X/DAY
     Route: 048
     Dates: end: 20130601
  4. TOPAMAX [Concomitant]
     Dosage: 50 MG, 1X/DAY
  5. PRILOSEC [Concomitant]
     Dosage: 2 DF, 1X/DAY
  6. VICOPROFEN [Concomitant]
     Indication: ENDOMETRIOSIS
     Dosage: 7.5/200 MG, UNK

REACTIONS (6)
  - Off label use [Unknown]
  - Cheilitis [Unknown]
  - Oral discomfort [Unknown]
  - Burning sensation [Unknown]
  - Pain [Unknown]
  - Dysgeusia [Unknown]
